FAERS Safety Report 6015779-5 (Version None)
Quarter: 2008Q4

REPORT INFORMATION
  Report Type: 
  Country: None (occurrence: None)
  Receive Date: 20081219
  Receipt Date: 20081219
  Transmission Date: 20090506
  Serious: Yes (Hospitalization)
  Sender: FDA-Public Use
  Company Number: None

PATIENT
  Sex: Male
  Weight: 90.3 kg

DRUGS (8)
  1. OXALIPLATIN [Suspect]
     Indication: GASTROINTESTINAL CARCINOMA
     Dosage: 275 MG Q 3WK IV DRIP
     Route: 041
     Dates: start: 20081110, end: 20081201
  2. CAPECITABINE [Concomitant]
  3. ONDANSTRON [Concomitant]
  4. DEXAMETHASONE [Concomitant]
  5. HYDROCODONE BITARTRATE + ACETAMINOPHEN [Concomitant]
  6. PROMETHAZINE [Concomitant]
  7. IMODIUM [Concomitant]
  8. OTC GAS RELIEF TAB [Concomitant]

REACTIONS (7)
  - BALANCE DISORDER [None]
  - DIPLOPIA [None]
  - EYE MOVEMENT DISORDER [None]
  - SPEECH DISORDER [None]
  - TONGUE DISORDER [None]
  - VISION BLURRED [None]
  - VISUAL IMPAIRMENT [None]
